FAERS Safety Report 7724885-6 (Version None)
Quarter: 2011Q3

REPORT INFORMATION
  Report Type: 
  Country: None (occurrence: None)
  Receive Date: 20110901
  Receipt Date: 20110822
  Transmission Date: 20111222
  Serious: Yes (Other)
  Sender: FDA-Public Use
  Company Number: US-MPIJNJ-2011-03762

PATIENT
  Sex: Male
  Weight: 76.19 kg

DRUGS (3)
  1. SOLU-MEDROL [Concomitant]
     Indication: MULTIPLE MYELOMA
     Dosage: 100 MG, CYCLIC
     Dates: start: 20110705
  2. REVLIMID [Suspect]
     Indication: MULTIPLE MYELOMA
     Dosage: 25 MG, CYCLIC
     Route: 048
     Dates: start: 20110705
  3. VELCADE [Suspect]
     Indication: MULTIPLE MYELOMA
     Dosage: 2 MG, CYCLIC
     Dates: start: 20110705

REACTIONS (1)
  - WEIGHT DECREASED [None]
